FAERS Safety Report 14325943 (Version 5)
Quarter: 2019Q1

REPORT INFORMATION
  Report Type: Spontaneous
  Country: None (occurrence: GB)
  Receive Date: 20171226
  Receipt Date: 20190320
  Transmission Date: 20190417
  Serious: Yes (Life-Threatening, Other)
  Sender: FDA-Public Use
  Company Number: GB-MYLANLABS-2017M1082151

PATIENT
  Age: 69 Year
  Sex: Female

DRUGS (8)
  1. PEMETREXED. [Suspect]
     Active Substance: PEMETREXED
     Indication: EPITHELIOID MESOTHELIOMA
  2. CISPLATIN. [Suspect]
     Active Substance: CISPLATIN
     Indication: PLEURAL MESOTHELIOMA
     Dosage: UNK
     Route: 005
  3. PEMBROLIZUMAB. [Concomitant]
     Active Substance: PEMBROLIZUMAB
     Indication: PRODUCT USED FOR UNKNOWN INDICATION
     Dosage: UNK
     Route: 065
  4. PEMETREXED. [Suspect]
     Active Substance: PEMETREXED
     Indication: PLEURAL MESOTHELIOMA
     Dosage: UNK
     Route: 065
  5. ACETAMINOPHEN. [Suspect]
     Active Substance: ACETAMINOPHEN
     Indication: PRODUCT USED FOR UNKNOWN INDICATION
     Dosage: UNK
     Route: 065
  6. CISPLATIN. [Suspect]
     Active Substance: CISPLATIN
     Indication: EPITHELIOID MESOTHELIOMA
  7. PREDNISOLONE. [Suspect]
     Active Substance: PREDNISOLONE
     Indication: ARTHROPATHY
     Dosage: 30 MG, UNK
     Route: 065
  8. PREDNISOLONE. [Suspect]
     Active Substance: PREDNISOLONE
     Dosage: UNK

REACTIONS (4)
  - Arthropathy [Unknown]
  - Off label use [Unknown]
  - Rebound effect [Unknown]
  - Drug ineffective [Unknown]
